FAERS Safety Report 8298538-2 (Version None)
Quarter: 2012Q2

REPORT INFORMATION
  Report Type: 
  Country: None (occurrence: None)
  Receive Date: 20120419
  Receipt Date: 20110617
  Transmission Date: 20120825
  Serious: No
  Sender: FDA-Public Use
  Company Number: US-ABBOTT-11P-163-0733741-00

PATIENT
  Sex: Female
  Weight: 49.94 kg

DRUGS (1)
  1. LUPRON DEPOT-PED [Suspect]
     Indication: PRECOCIOUS PUBERTY
     Route: 030
     Dates: start: 20101201

REACTIONS (5)
  - ANGER [None]
  - ANTISOCIAL BEHAVIOUR [None]
  - DEPRESSED MOOD [None]
  - CRYING [None]
  - DEPRESSION [None]
